FAERS Safety Report 6176415-0 (Version None)
Quarter: 2009Q2

REPORT INFORMATION
  Report Type: 
  Country: None (occurrence: None)
  Receive Date: 20090501
  Receipt Date: 20090421
  Transmission Date: 20091009
  Serious: Yes (Hospitalization, Disabling)
  Sender: FDA-Public Use
  Company Number: MY-MERCK-0904MYS00013

PATIENT
  Age: 65 Year
  Sex: Male

DRUGS (5)
  1. JANUVIA [Suspect]
     Indication: TYPE 2 DIABETES MELLITUS
     Route: 048
     Dates: start: 20090417, end: 20090419
  2. ATENOLOL [Concomitant]
     Indication: HYPERTENSION
     Route: 048
     Dates: start: 20090414
  3. AMLODIPINE [Concomitant]
     Indication: HYPERTENSION
     Route: 048
  4. MOXONIDINE [Concomitant]
     Indication: HYPERTENSION
     Route: 048
     Dates: start: 20090416, end: 20090419
  5. EPOETIN BETA [Concomitant]
     Indication: ANAEMIA
     Route: 048
     Dates: start: 20090416, end: 20090416

REACTIONS (3)
  - HYPONATRAEMIA [None]
  - NAUSEA [None]
  - NEUTROPHILIA [None]
